FAERS Safety Report 8881993 (Version 3)
Quarter: 2013Q1

REPORT INFORMATION
  Report Type: Spontaneous
  Country: CA (occurrence: CA)
  Receive Date: 20121102
  Receipt Date: 20130124
  Transmission Date: 20140127
  Serious: Yes (Hospitalization, Other)
  Sender: FDA-Public Use
  Company Number: PHHY2009CA40510

PATIENT
  Sex: Female

DRUGS (3)
  1. SANDOSTATIN LAR [Suspect]
     Indication: NEUROENDOCRINE TUMOUR
     Dosage: 30 MG, EVERY 4 WEEK
     Route: 030
     Dates: start: 20071003
  2. SANDOSTATIN LAR [Suspect]
     Dosage: 60 MG, QMO
     Route: 030
  3. SANDOSTATIN LAR [Suspect]
     Dosage: 60 MG EVERY 4 WEEKS
     Route: 030
     Dates: end: 20111109

REACTIONS (7)
  - Cardiac disorder [Unknown]
  - Pancreatic disorder [Unknown]
  - Blood pressure diastolic decreased [Unknown]
  - Blood pressure increased [Unknown]
  - Diarrhoea [Unknown]
  - Fatigue [Unknown]
  - Drug ineffective [Unknown]
